FAERS Safety Report 5140966-8 (Version None)
Quarter: 2006Q4

REPORT INFORMATION
  Report Type: 
  Country: None (occurrence: None)
  Receive Date: 20061027
  Receipt Date: 20061027
  Transmission Date: 20070319
  Serious: Yes (Other)
  Sender: FDA-Public Use
  Company Number: None

PATIENT
  Sex: Female

DRUGS (1)
  1. FERRLECIT [Suspect]
     Indication: IRON DEFICIENCY ANAEMIA
     Dosage: 125MG WEEKLY IV BOLUS
     Route: 042
     Dates: start: 20060918, end: 20061016

REACTIONS (3)
  - BACK PAIN [None]
  - CHEST DISCOMFORT [None]
  - HYPOVENTILATION [None]
